FAERS Safety Report 9257103 (Version 2)
Quarter: 2013Q2

REPORT INFORMATION
  Report Type: Spontaneous
  Country: JP (occurrence: JP)
  Receive Date: 20130426
  Receipt Date: 20130530
  Transmission Date: 20140414
  Serious: Yes (Other)
  Sender: FDA-Public Use
  Company Number: JP-MERCK-1304JPN015150

PATIENT
  Age: 56 Year
  Sex: Male

DRUGS (2)
  1. GLACTIV [Suspect]
     Indication: TYPE 2 DIABETES MELLITUS
     Dosage: UNK
     Route: 048
     Dates: start: 201012
  2. LIPOVAS TABLETS - 5 [Concomitant]
     Dosage: UNK
     Route: 048
     Dates: start: 201205

REACTIONS (1)
  - Interstitial lung disease [Unknown]
